FAERS Safety Report 9245595 (Version 1)
Quarter: 2013Q2

REPORT INFORMATION
  Report Type: Spontaneous
  Country: US (occurrence: US)
  Receive Date: 20130422
  Receipt Date: 20130422
  Transmission Date: 20140414
  Serious: No
  Sender: FDA-Public Use
  Company Number: US-PFIZER INC-2013119274

PATIENT
  Age: 68 Year
  Sex: Female
  Weight: 73.92 kg

DRUGS (5)
  1. PRISTIQ [Suspect]
     Indication: ANTIDEPRESSANT THERAPY
     Dosage: 100 MG, UNK
  2. PRISTIQ [Suspect]
     Dosage: 50 MG, DAILY
     Dates: start: 2011
  3. PRISTIQ [Suspect]
     Dosage: 100 MG, UNK
     Dates: start: 201209
  4. PROLIA [Concomitant]
     Indication: OSTEOPOROSIS
     Dosage: UNK, 2X/YEAR
     Route: 030
  5. LEVOTHYROXINE SODIUM [Concomitant]
     Indication: THYROID DISORDER
     Dosage: 50 UG, DAILY

REACTIONS (2)
  - Drug ineffective [Unknown]
  - Social avoidant behaviour [Unknown]
